FAERS Safety Report 23863509 (Version 1)
Quarter: 2024Q2

REPORT INFORMATION
  Report Type: Spontaneous
  Country: US (occurrence: US)
  Receive Date: 20240516
  Receipt Date: 20240516
  Transmission Date: 20240715
  Serious: No
  Sender: FDA-Public Use
  Company Number: US-Calliditas-2024CAL00718

PATIENT
  Age: 38 Year
  Sex: Female

DRUGS (1)
  1. TARPEYO [Suspect]
     Active Substance: BUDESONIDE
     Indication: IgA nephropathy
     Route: 048
     Dates: start: 20240207

REACTIONS (5)
  - Gastrooesophageal reflux disease [Unknown]
  - Paraesthesia [Unknown]
  - Dyspepsia [Unknown]
  - Cushingoid [Unknown]
  - Paraesthesia [Unknown]
